FAERS Safety Report 17556403 (Version 7)
Quarter: 2024Q3

REPORT INFORMATION
  Report Type: Spontaneous
  Country: US (occurrence: US)
  Receive Date: 20200318
  Receipt Date: 20240712
  Transmission Date: 20241017
  Serious: No
  Sender: SANOFI AVENTIS
  Company Number: US-SA-2020SA060933

PATIENT
  Age: 30 Year
  Sex: Female
  Weight: 86.18 kg

DRUGS (4)
  1. DUPIXENT [Suspect]
     Active Substance: DUPILUMAB
     Indication: Dermatitis atopic
     Dosage: 300 MG, QOW
     Route: 058
     Dates: start: 20200304
  2. DUPIXENT [Suspect]
     Active Substance: DUPILUMAB
     Indication: Dermatitis atopic
     Dosage: 300 MG, QOW
     Route: 058
     Dates: start: 202103
  3. CERAVE PSORIASIS [Concomitant]
     Dosage: UNK
  4. SPRINTEC [Concomitant]
     Active Substance: ETHINYL ESTRADIOL\NORGESTIMATE

REACTIONS (12)
  - Eye pain [Not Recovered/Not Resolved]
  - Eyelid pain [Unknown]
  - Eye infection [Recovering/Resolving]
  - Poor quality sleep [Recovering/Resolving]
  - Rash pruritic [Recovering/Resolving]
  - Skin haemorrhage [Recovering/Resolving]
  - Swelling of eyelid [Unknown]
  - Oropharyngeal pain [Not Recovered/Not Resolved]
  - Nasopharyngitis [Recovered/Resolved]
  - Dermatitis atopic [Recovered/Resolved]
  - Eczema eyelids [Recovered/Resolved]
  - Therapeutic response shortened [Recovered/Resolved]

NARRATIVE: CASE EVENT DATE: 20200101
